FAERS Safety Report 9552555 (Version 1)
Quarter: 2013Q3

REPORT INFORMATION
  Report Type: Spontaneous
  Country: US (occurrence: None)
  Receive Date: 20130729
  Receipt Date: 20130729
  Transmission Date: 20140515
  Serious: Yes (Hospitalization)
  Sender: FDA-Public Use
  Company Number: 1305USA006756

PATIENT
  Age: 56 Year
  Sex: Female

DRUGS (3)
  1. VICTRELIS [Suspect]
     Indication: HEPATITIS C
     Route: 048
     Dates: start: 20120801
  2. REBETOL (RIBAVIRIN) CAPSULE [Suspect]
     Route: 048
  3. PEGASYS (PEGINTERFERON ALFA-2A) [Suspect]

REACTIONS (2)
  - Anaemia [None]
  - Nausea [None]
